FAERS Safety Report 5968355-4 (Version None)
Quarter: 2008Q4

REPORT INFORMATION
  Report Type: 
  Country: None (occurrence: None)
  Receive Date: 20081126
  Receipt Date: 20081121
  Transmission Date: 20090506
  Serious: Yes (Hospitalization)
  Sender: FDA-Public Use
  Company Number: US-BAYER-200836624NA

PATIENT
  Age: 35 Year
  Sex: Female
  Weight: 83 kg

DRUGS (6)
  1. YAZ [Suspect]
     Indication: DYSMENORRHOEA
     Route: 048
     Dates: start: 20080710, end: 20080917
  2. SYNTHROID [Concomitant]
     Indication: HYPOTHYROIDISM
     Route: 048
     Dates: start: 20080723
  3. ZYRTEC [Concomitant]
  4. ALLERY INJECTION NOS [Concomitant]
  5. NASONEX [Concomitant]
  6. CLARITIN [Concomitant]
     Route: 048

REACTIONS (4)
  - CHEST PAIN [None]
  - DYSPNOEA [None]
  - FATIGUE [None]
  - PULMONARY EMBOLISM [None]
